FAERS Safety Report 7784152-1 (Version None)
Quarter: 2011Q3

REPORT INFORMATION
  Report Type: 
  Country: None (occurrence: None)
  Receive Date: 20110928
  Receipt Date: 20110921
  Transmission Date: 20111222
  Serious: Yes (Death)
  Sender: FDA-Public Use
  Company Number: US-CELGENEUS-163-21880-11031869

PATIENT
  Sex: Female

DRUGS (16)
  1. CYCLOPHOSPHAMIDE [Concomitant]
     Route: 065
  2. THALOMID [Suspect]
     Indication: MULTIPLE MYELOMA
     Route: 048
     Dates: start: 20110201, end: 20110301
  3. CALCIUM CARBONATE [Concomitant]
     Route: 065
  4. MAGNESIUM OXIDE [Concomitant]
     Route: 065
  5. AMBIEN [Concomitant]
     Route: 065
  6. GABAPENTIN [Concomitant]
     Route: 065
  7. CLARITIN [Concomitant]
     Route: 065
  8. DARVOCET [Concomitant]
     Route: 065
  9. DARVON [Concomitant]
     Route: 065
  10. ALLOPURINOL [Concomitant]
     Route: 065
  11. DEXAMETHASONE [Concomitant]
     Route: 065
  12. IMODIUM [Concomitant]
     Route: 065
  13. OXYCODONE [Concomitant]
     Route: 065
  14. VALTREX [Concomitant]
     Route: 065
  15. MULTI-VITAMINS [Concomitant]
     Route: 065
  16. ASPIRIN [Concomitant]
     Route: 065

REACTIONS (2)
  - MULTIPLE MYELOMA [None]
  - RENAL FAILURE [None]
